FAERS Safety Report 20769012 (Version 1)
Quarter: 2022Q2

REPORT INFORMATION
  Report Type: Report from Study
  Country: DE (occurrence: DE)
  Receive Date: 20220429
  Receipt Date: 20220429
  Transmission Date: 20220720
  Serious: Yes (Life-Threatening, Hospitalization, Other)
  Sender: FDA-Public Use
  Company Number: DE-MYLANLABS-2022M1031653

PATIENT
  Sex: Male
  Weight: 98 kg

DRUGS (7)
  1. HULIO [Suspect]
     Active Substance: ADALIMUMAB-FKJP
     Indication: Psoriasis
     Dosage: UNK (STOP DATE: 15-DEC-2021)
     Dates: start: 20210907, end: 20211215
  2. TILDRAKIZUMAB [Suspect]
     Active Substance: TILDRAKIZUMAB
     Indication: Psoriasis
     Dosage: 100 MILLIGRAM (1 ST INJECTION : STUD0 14; 2 ND INJECTION STUD0 16)
     Route: 058
     Dates: start: 20211222
  3. TILDRAKIZUMAB [Suspect]
     Active Substance: TILDRAKIZUMAB
     Dosage: 100 MILLIGRAM
     Route: 058
     Dates: end: 20220119
  4. CANDESARTAN [Concomitant]
     Active Substance: CANDESARTAN
     Indication: Hypertension
     Dosage: 16 MILLIGRAM, TODAY (AFFILIATE COMMENT: DAY OF RECORDING BY PHYSICIAN: 07-APR2022)
     Route: 048
     Dates: start: 2018
  5. ASPIRIN [Concomitant]
     Active Substance: ASPIRIN
     Indication: Antiplatelet therapy
     Dosage: 100 MILLIGRAM, TODAY (AFFILIATE COMMENT: DAY OF RECORDING BY PHYSICIAN: 07-APR2022)
     Route: 048
     Dates: start: 20220312
  6. CLOPIDOGREL [Concomitant]
     Active Substance: CLOPIDOGREL BISULFATE
     Indication: Antiplatelet therapy
     Dosage: 75 MILLIGRAM, TODAY (AFFILIATE COMMENT: DAY OF RECORDING BY PHYSICIAN: 07-APR2022)
     Route: 048
     Dates: start: 20220312
  7. ATORVASTATIN [Concomitant]
     Active Substance: ATORVASTATIN
     Indication: Blood cholesterol abnormal
     Dosage: 20 MILLIGRAM, TODAY (AFFILIATE COMMENT: DAY OF RECORDING BY PHYSICIAN: 07-APR2022)
     Route: 048
     Dates: start: 20220312

REACTIONS (4)
  - Cerebrovascular accident [Recovered/Resolved]
  - Aphasia [Recovered/Resolved]
  - Facial paresis [Recovered/Resolved]
  - Hypoaesthesia [Recovered/Resolved]

NARRATIVE: CASE EVENT DATE: 20220312
